FAERS Safety Report 4336457-4 (Version None)
Quarter: 2004Q2

REPORT INFORMATION
  Report Type: 
  Country: None (occurrence: None)
  Receive Date: 20040409
  Receipt Date: 20040409
  Transmission Date: 20050107
  Serious: No
  Sender: FDA-Public Use
  Company Number: None

PATIENT
  Age: 46 Year
  Sex: Male

DRUGS (3)
  1. ATENOLOL [Suspect]
     Indication: HYPERTENSION
     Dosage: 1 QD
     Dates: start: 20040317, end: 20040327
  2. NEXIUM [Concomitant]
  3. ACCUPRIL [Concomitant]

REACTIONS (2)
  - BLOOD PRESSURE INCREASED [None]
  - PHARMACEUTICAL PRODUCT COMPLAINT [None]
